FAERS Safety Report 7206829-9 (Version None)
Quarter: 2011Q1

REPORT INFORMATION
  Report Type: 
  Country: None (occurrence: None)
  Receive Date: 20110103
  Receipt Date: 20101229
  Transmission Date: 20110831
  Serious: Yes (Death)
  Sender: FDA-Public Use
  Company Number: US-SANOFI-AVENTIS-2010SA078528

PATIENT
  Age: 50 Year
  Sex: Male

DRUGS (9)
  1. COZAAR [Concomitant]
  2. POTASSIUM [Concomitant]
  3. AMARYL [Concomitant]
  4. COREG [Concomitant]
  5. ASPIRIN [Concomitant]
  6. ALDACTONE [Concomitant]
  7. MEVACOR [Concomitant]
  8. PLAVIX [Suspect]
     Indication: MYOCARDIAL INFARCTION
     Route: 048
     Dates: start: 20100701, end: 20101201
  9. LASIX [Concomitant]

REACTIONS (2)
  - MYOCARDIAL INFARCTION [None]
  - OEDEMA [None]
